FAERS Safety Report 4682881-X (Version None)
Quarter: 2005Q2

REPORT INFORMATION
  Report Type: 
  Country: None (occurrence: None)
  Receive Date: 20050531
  Receipt Date: 20041124
  Transmission Date: 20051028
  Serious: Yes (Other)
  Sender: FDA-Public Use
  Company Number: 200419102US

PATIENT
  Age: 78 Year
  Sex: Female
  Weight: 57 kg

DRUGS (7)
  1. LOVENOX [Suspect]
     Indication: HIP ARTHROPLASTY
     Dosage: 40 MG QD INJ
     Dates: start: 20041122, end: 20041123
  2. LOVENOX [Suspect]
     Indication: PROPHYLAXIS
     Dosage: 40 MG QD INJ
     Dates: start: 20041122, end: 20041123
  3. MORPHINE [Concomitant]
  4. DOCUSATE SODIUM (COLACE) [Concomitant]
  5. IRON [Concomitant]
  6. FUROSEMIDE [Concomitant]
  7. GLIPIZIDE [Concomitant]

REACTIONS (1)
  - THROMBOCYTOPENIA [None]
